FAERS Safety Report 8624055-3 (Version None)
Quarter: 2012Q3

REPORT INFORMATION
  Report Type: 
  Country: None (occurrence: None)
  Receive Date: 20120827
  Receipt Date: 20120820
  Transmission Date: 20120928
  Serious: No
  Sender: FDA-Public Use
  Company Number: US-B.I. PHARMACEUTICALS,INC./RIDGEFIELD-2012-BP-20262BP

PATIENT
  Sex: Female

DRUGS (4)
  1. FELDENE [Concomitant]
     Indication: INFLAMMATION
     Dates: start: 20040101
  2. LEVOTHYROXINE SODIUM [Concomitant]
     Indication: HYPOTHYROIDISM
     Dates: start: 20020101
  3. SPIRIVA [Suspect]
     Indication: EMPHYSEMA
     Dosage: 18 MCG
     Route: 055
  4. HYDROCODONE [Concomitant]
     Indication: PAIN IN EXTREMITY
     Dates: start: 20090101

REACTIONS (2)
  - SLEEP DISORDER [None]
  - DRY MOUTH [None]
